FAERS Safety Report 25751021 (Version 1)
Quarter: 2025Q3

REPORT INFORMATION
  Report Type: Spontaneous
  Country: US (occurrence: None)
  Receive Date: 20250830
  Receipt Date: 20250830
  Transmission Date: 20251020
  Serious: No
  Sender: FDA-CTU
  Company Number: None

PATIENT
  Age: 53 Year
  Sex: Female
  Weight: 54 kg

DRUGS (3)
  1. ZYRTEC [Suspect]
     Active Substance: CETIRIZINE HYDROCHLORIDE
     Indication: Urticaria
     Dates: start: 20250818, end: 20250826
  2. VITAMINS [Concomitant]
     Active Substance: VITAMINS
  3. SIMVASTATIN [Concomitant]
     Active Substance: SIMVASTATIN

REACTIONS (4)
  - Pruritus [None]
  - Sneezing [None]
  - Rhinitis [None]
  - Withdrawal syndrome [None]

NARRATIVE: CASE EVENT DATE: 20250828
